FAERS Safety Report 18481870 (Version 1)
Quarter: 2020Q4

REPORT INFORMATION
  Report Type: Spontaneous
  Country: IT (occurrence: IT)
  Receive Date: 20201109
  Receipt Date: 20201109
  Transmission Date: 20210114
  Serious: Yes (Other)
  Sender: FDA-Public Use
  Company Number: IT-MYLANLABS-2020M1093322

PATIENT
  Age: 67 Year
  Sex: Female

DRUGS (4)
  1. TRASTUZUMAB. [Suspect]
     Active Substance: TRASTUZUMAB
     Indication: EXTRAMAMMARY PAGET^S DISEASE
     Dosage: SCHEDULED FOR 18 WEEKS
     Route: 065
     Dates: start: 201806
  2. TRASTUZUMAB. [Suspect]
     Active Substance: TRASTUZUMAB
     Indication: PAGET^S DISEASE OF THE VULVA
  3. PACLITAXEL. [Suspect]
     Active Substance: PACLITAXEL
     Indication: EXTRAMAMMARY PAGET^S DISEASE
     Dosage: SCHEDULED FOR 18 WEEKS
     Route: 065
     Dates: start: 201806
  4. PACLITAXEL. [Suspect]
     Active Substance: PACLITAXEL
     Indication: PAGET^S DISEASE OF THE VULVA
     Dosage: DOSE REDUCED TO 80% DUE TO THE...
     Route: 065

REACTIONS (9)
  - Fatigue [Unknown]
  - Off label use [Unknown]
  - Constipation [Unknown]
  - Nausea [Unknown]
  - Skin discolouration [Unknown]
  - Alopecia [Unknown]
  - Neurotoxicity [Unknown]
  - Anaemia [Unknown]
  - Neuropathy peripheral [Unknown]
